FAERS Safety Report 22081729 (Version 1)
Quarter: 2023Q1

REPORT INFORMATION
  Report Type: Spontaneous
  Country: US (occurrence: US)
  Receive Date: 20230310
  Receipt Date: 20230310
  Transmission Date: 20230417
  Serious: No
  Sender: FDA-Public Use
  Company Number: US-STRIDES ARCOLAB LIMITED-2023SP000607

PATIENT
  Sex: Female
  Weight: 78.2 kg

DRUGS (7)
  1. TACROLIMUS [Suspect]
     Active Substance: TACROLIMUS
     Indication: Prophylaxis
     Dosage: 3 MILLIGRAM, BID
     Route: 065
     Dates: start: 20200720, end: 20230131
  2. PREDNISOLONE [Suspect]
     Active Substance: PREDNISOLONE
     Indication: Prophylaxis
     Dosage: 5 MILLIGRAM, QD
     Route: 065
     Dates: start: 20200220, end: 20230131
  3. MYCOPHENOLATE MOFETIL [Suspect]
     Active Substance: MYCOPHENOLATE MOFETIL
     Indication: Renal transplant
     Dosage: 750 MILLIGRAM, BID
     Route: 048
     Dates: start: 201212, end: 20221231
  4. PROTONIX [Suspect]
     Active Substance: PANTOPRAZOLE SODIUM
     Indication: Product used for unknown indication
     Dosage: 40 MILLIGRAM, QD (STOP DATE: OCT 2022)
     Route: 065
  5. PROZAC [Suspect]
     Active Substance: FLUOXETINE HYDROCHLORIDE
     Indication: Product used for unknown indication
     Dosage: 20 MILLIGRAM, QD
     Route: 065
     Dates: start: 202210, end: 202210
  6. NOVOLOG [Suspect]
     Active Substance: INSULIN ASPART
     Indication: Diabetes mellitus
     Dosage: UNK, AT BED TIME, SLIDING SCALE DOSAGE, AC/HS
     Route: 065
     Dates: start: 202210, end: 202210
  7. SODIUM BICARBONATE [Suspect]
     Active Substance: SODIUM BICARBONATE
     Indication: Product used for unknown indication
     Dosage: 1300 MILLIGRAM, TID
     Route: 065
     Dates: start: 202210, end: 202210

REACTIONS (1)
  - Maternal exposure during pregnancy [Unknown]
